FAERS Safety Report 7385655-4 (Version None)
Quarter: 2011Q1

REPORT INFORMATION
  Report Type: 
  Country: None (occurrence: None)
  Receive Date: 20110331
  Receipt Date: 20110322
  Transmission Date: 20110831
  Serious: No
  Sender: FDA-Public Use
  Company Number: US-BIOGENIDEC-2011BI010924

PATIENT
  Age: 59 Year
  Sex: Female

DRUGS (1)
  1. AVONEX [Suspect]
     Indication: MULTIPLE SCLEROSIS
     Route: 030
     Dates: start: 20100429, end: 20100912

REACTIONS (17)
  - PAIN IN EXTREMITY [None]
  - DEPRESSED MOOD [None]
  - HEART RATE INCREASED [None]
  - BALANCE DISORDER [None]
  - VERTIGO [None]
  - FATIGUE [None]
  - CONFUSIONAL STATE [None]
  - HEADACHE [None]
  - OEDEMA PERIPHERAL [None]
  - NAUSEA [None]
  - WEIGHT INCREASED [None]
  - PYREXIA [None]
  - DIZZINESS [None]
  - GAIT DISTURBANCE [None]
  - RESTLESS LEGS SYNDROME [None]
  - PROTEIN TOTAL INCREASED [None]
  - HEAD DISCOMFORT [None]
